FAERS Safety Report 24729658 (Version 1)
Quarter: 2024Q4

REPORT INFORMATION
  Report Type: Report from Study
  Country: US (occurrence: US)
  Receive Date: 20241213
  Receipt Date: 20241213
  Transmission Date: 20250114
  Serious: Yes (Other)
  Sender: Pyros Pharmaceuticals
  Company Number: US-PYROS PHARMACEUTICALS, INC-2024-PYROS-US000069

PATIENT
  Age: 0 Year
  Sex: Female
  Weight: 7.94 kg

DRUGS (7)
  1. VIGAFYDE [Suspect]
     Active Substance: VIGABATRIN
     Indication: Infantile spasms
     Dosage: 450 MG (4.5 ML), BID
     Route: 048
     Dates: start: 20240916, end: 20241128
  2. VIGAFYDE [Suspect]
     Active Substance: VIGABATRIN
     Indication: Simple partial seizures
     Dosage: 400 MG (4 ML), BID IN THE MORNING AND AFTERNOON
     Route: 048
     Dates: start: 202410, end: 20241128
  3. VIGAFYDE [Suspect]
     Active Substance: VIGABATRIN
     Indication: Tuberous sclerosis complex
     Dosage: 500 MG, (5 ML),IN THE EVENING
     Route: 048
     Dates: start: 202410, end: 20241128
  4. VIGAFYDE [Suspect]
     Active Substance: VIGABATRIN
     Dosage: 400 MG (4 ML), TID
     Route: 048
     Dates: start: 20241129
  5. ONFI [Concomitant]
     Active Substance: CLOBAZAM
     Indication: Product used for unknown indication
     Dosage: 0.5 ML, DAILY (MORNING)
  6. ONFI [Concomitant]
     Active Substance: CLOBAZAM
     Dosage: 0.5 ML, DAILY(AFTERNOON)
  7. ONFI [Concomitant]
     Active Substance: CLOBAZAM
     Dosage: 1 ML, DAILY (EVENING)

REACTIONS (4)
  - Seizure [Not Recovered/Not Resolved]
  - Drug ineffective [Not Recovered/Not Resolved]
  - Off label use [Unknown]
  - Prescribed overdose [Unknown]

NARRATIVE: CASE EVENT DATE: 20240916
